FAERS Safety Report 8995814 (Version 2)
Quarter: 2013Q1

REPORT INFORMATION
  Report Type: Report from Study
  Country: US (occurrence: US)
  Receive Date: 20130103
  Receipt Date: 20130313
  Transmission Date: 20140127
  Serious: Yes (Hospitalization)
  Sender: FDA-Public Use
  Company Number: US-TEVA-378318USA

PATIENT
  Age: 62 Year
  Sex: Female
  Weight: 71.73 kg

DRUGS (7)
  1. TREANDA [Suspect]
     Indication: NON-HODGKIN^S LYMPHOMA
     Route: 042
     Dates: start: 20110815, end: 20120104
  2. RITUXAN [Suspect]
     Indication: NON-HODGKIN^S LYMPHOMA
     Route: 042
     Dates: start: 20120221, end: 20121101
  3. RITUXAN [Suspect]
     Route: 042
     Dates: start: 20110815, end: 20120104
  4. BORTEZOMIB [Suspect]
     Indication: NON-HODGKIN^S LYMPHOMA
     Route: 042
     Dates: start: 20110815, end: 20120104
  5. LORAZEPAM [Concomitant]
     Indication: ANXIETY
  6. MULTIVITAMIN [Concomitant]
     Indication: VITAMIN SUPPLEMENTATION
  7. VITAMIN D3 [Concomitant]
     Indication: VITAMIN SUPPLEMENTATION

REACTIONS (1)
  - Hepatitis [Recovered/Resolved]
